FAERS Safety Report 4780055-5 (Version None)
Quarter: 2005Q3

REPORT INFORMATION
  Report Type: 
  Country: None (occurrence: None)
  Receive Date: 20050914
  Receipt Date: 20050428
  Transmission Date: 20060218
  Serious: Yes (Death)
  Sender: FDA-Public Use
  Company Number: 163-20785-05050001

PATIENT
  Age: 70 Year
  Sex: Female

DRUGS (2)
  1. THALOMID [Suspect]
     Indication: NON-HODGKIN'S LYMPHOMA
     Dosage: 400-800MG, QD, ORAL
     Route: 048
     Dates: start: 20050201, end: 20050321
  2. CHEMOTHERAPY [Concomitant]

REACTIONS (2)
  - DEATH [None]
  - DISEASE PROGRESSION [None]
